FAERS Safety Report 13765072 (Version 1)
Quarter: 2017Q3

REPORT INFORMATION
  Report Type: Spontaneous
  Country: MY (occurrence: MY)
  Receive Date: 20170718
  Receipt Date: 20170718
  Transmission Date: 20171127
  Serious: Yes (Hospitalization)
  Sender: FDA-Public Use
  Company Number: MY-BAYER-2017-131765

PATIENT
  Age: 65 Year
  Sex: Male

DRUGS (1)
  1. CIPROFLOXACIN. [Suspect]
     Active Substance: CIPROFLOXACIN
     Indication: OTITIS EXTERNA
     Dosage: UNK
     Route: 048

REACTIONS (5)
  - Drug ineffective for unapproved indication [None]
  - Facial paralysis [Recovered/Resolved]
  - Off label use [None]
  - Product use in unapproved indication [None]
  - Petrositis [None]
